FAERS Safety Report 14373883 (Version 2)
Quarter: 2018Q1

REPORT INFORMATION
  Report Type: Spontaneous
  Country: BR (occurrence: BR)
  Receive Date: 20180110
  Receipt Date: 20180118
  Transmission Date: 20180509
  Serious: Yes (Other)
  Sender: FDA-Public Use
  Company Number: BR-AMGEN-BRASP2018003471

PATIENT
  Age: 54 Year
  Sex: Female

DRUGS (1)
  1. ENBREL [Suspect]
     Active Substance: ETANERCEPT
     Indication: PRODUCT USED FOR UNKNOWN INDICATION
     Dosage: UNK
     Route: 065
     Dates: start: 2015

REACTIONS (13)
  - Impaired quality of life [Not Recovered/Not Resolved]
  - Walking aid user [Not Recovered/Not Resolved]
  - Dysgraphia [Unknown]
  - Pulmonary mass [Unknown]
  - Osteoarthritis [Unknown]
  - Cardiac disorder [Unknown]
  - Cyst [Unknown]
  - Gait inability [Recovered/Resolved]
  - Limb injury [Unknown]
  - Nerve injury [Unknown]
  - Arthritis [Unknown]
  - Arrhythmia [Unknown]
  - Drug dose omission [Recovered/Resolved]
